FAERS Safety Report 25482605 (Version 2)
Quarter: 2025Q2

REPORT INFORMATION
  Report Type: Report from Study
  Country: US (occurrence: US)
  Receive Date: 20250626
  Receipt Date: 20250630
  Transmission Date: 20250717
  Serious: Yes (Other)
  Sender: MYLAN
  Company Number: US-MYLANLABS-2025M1052588

PATIENT
  Sex: Female
  Weight: 88.45 kg

DRUGS (4)
  1. GLATIRAMER ACETATE [Suspect]
     Active Substance: GLATIRAMER ACETATE
     Indication: Multiple sclerosis
     Dosage: 40 MILLIGRAM, 3XW (THREE TIMES A WEEK)
     Dates: end: 20250606
  2. GLATIRAMER ACETATE [Suspect]
     Active Substance: GLATIRAMER ACETATE
     Dosage: 40 MILLIGRAM, 3XW (THREE TIMES A WEEK)
     Route: 058
     Dates: end: 20250606
  3. GLATIRAMER ACETATE [Suspect]
     Active Substance: GLATIRAMER ACETATE
     Dosage: 40 MILLIGRAM, 3XW (THREE TIMES A WEEK)
     Route: 058
     Dates: end: 20250606
  4. GLATIRAMER ACETATE [Suspect]
     Active Substance: GLATIRAMER ACETATE
     Dosage: 40 MILLIGRAM, 3XW (THREE TIMES A WEEK)
     Dates: end: 20250606

REACTIONS (10)
  - Deafness transitory [Recovered/Resolved]
  - Presyncope [Unknown]
  - Chest discomfort [Recovered/Resolved]
  - Cold-stimulus headache [Recovered/Resolved]
  - Gait disturbance [Recovered/Resolved]
  - Tremor [Unknown]
  - Nervousness [Unknown]
  - Chest pain [Recovered/Resolved]
  - Flushing [Unknown]
  - Circumstance or information capable of leading to medication error [Unknown]
